FAERS Safety Report 7477073-5 (Version None)
Quarter: 2011Q2

REPORT INFORMATION
  Report Type: 
  Country: None (occurrence: None)
  Receive Date: 20110512
  Receipt Date: 20110428
  Transmission Date: 20111010
  Serious: Yes (Hospitalization, Other)
  Sender: FDA-Public Use
  Company Number: US-BAUSCH-2011BL002949

PATIENT
  Age: 22 Year
  Sex: Male

DRUGS (1)
  1. FLUOCINOLONE ACETONIDE [Suspect]
     Indication: UVEITIS
     Route: 031
     Dates: start: 20080701

REACTIONS (2)
  - NECROTISING RETINITIS [None]
  - HERPES OPHTHALMIC [None]
